FAERS Safety Report 9969904 (Version 1)
Quarter: 2014Q1

REPORT INFORMATION
  Report Type: Spontaneous
  Country: US (occurrence: None)
  Receive Date: 20140305
  Receipt Date: 20140305
  Transmission Date: 20141002
  Serious: Yes (Death)
  Sender: FDA-Public Use
  Company Number: None

PATIENT
  Age: 59 Year
  Sex: Female

DRUGS (4)
  1. VELIPARIB [Suspect]
     Indication: FALLOPIAN TUBE CANCER METASTATIC
     Dosage: 2, BID, ORAL
     Route: 048
     Dates: start: 20140219, end: 20140225
  2. HYDROCODONE/APAP [Concomitant]
  3. TRAMADOL [Concomitant]
  4. LEVOTHYROXINE [Concomitant]

REACTIONS (1)
  - Dysphagia [None]
